FAERS Safety Report 6003613-9 (Version None)
Quarter: 2008Q4

REPORT INFORMATION
  Report Type: 
  Country: None (occurrence: None)
  Receive Date: 20081216
  Receipt Date: 20081204
  Transmission Date: 20090506
  Serious: Yes (Hospitalization, Other)
  Sender: FDA-Public Use
  Company Number: FR-PFIZER INC-2006075061

PATIENT

DRUGS (5)
  1. SOMATROPIN [Suspect]
     Indication: BODY HEIGHT BELOW NORMAL
     Dosage: 3.3 MG, 1X/DAY
     Route: 058
     Dates: start: 20021119
  2. SOMATROPIN [Suspect]
     Dosage: 2 MG, 1X/DAY
     Route: 058
     Dates: start: 20060516
  3. CORTANCYL [Suspect]
     Indication: JUVENILE ARTHRITIS
     Dosage: 25 MG, ALTERNATE DAY
     Route: 048
     Dates: start: 19940401
  4. CORTANCYL [Suspect]
     Dosage: UP TO 80MG DAILY
     Route: 048
     Dates: start: 20060503, end: 20060518
  5. NEORAL [Concomitant]
     Dosage: 25 UNK, UNK
     Route: 048
     Dates: start: 20030605

REACTIONS (3)
  - DIABETES MELLITUS [None]
  - HYPERTENSION [None]
  - NEPHROTIC SYNDROME [None]
